FAERS Safety Report 25794364 (Version 1)
Quarter: 2025Q3

REPORT INFORMATION
  Report Type: Spontaneous
  Country: US (occurrence: US)
  Receive Date: 20250912
  Receipt Date: 20250912
  Transmission Date: 20251020
  Serious: Yes (Hospitalization)
  Sender: ORPHALAN
  Company Number: US-ORPHALAN-US-ORP-25-00210

PATIENT

DRUGS (2)
  1. CUVRIOR [Suspect]
     Active Substance: TRIENTINE TETRAHYDROCHLORIDE
     Indication: Hepato-lenticular degeneration
     Dosage: 600 MILLIGRAM, BID
     Route: 064
     Dates: start: 20240307
  2. CUVRIOR [Suspect]
     Active Substance: TRIENTINE TETRAHYDROCHLORIDE
     Dosage: 300 MILLIGRAM, BID
     Route: 064
     Dates: start: 20250307

REACTIONS (1)
  - Premature baby [Recovered/Resolved]

NARRATIVE: CASE EVENT DATE: 20250805
